FAERS Safety Report 23088056 (Version 1)
Quarter: 2023Q4

REPORT INFORMATION
  Report Type: Report from Study
  Country: GB (occurrence: GB)
  Receive Date: 20231020
  Receipt Date: 20231020
  Transmission Date: 20240110
  Serious: Yes (Death)
  Sender: FDA-Public Use
  Company Number: GB-CELLTRION INC.-2023GB020386

PATIENT

DRUGS (21)
  1. BEVACIZUMAB [Suspect]
     Active Substance: BEVACIZUMAB
     Indication: Hepatocellular carcinoma
     Dosage: 900 MG
     Route: 065
     Dates: start: 20211103
  2. ATEZOLIZUMAB [Suspect]
     Active Substance: ATEZOLIZUMAB
     Indication: Hepatocellular carcinoma
     Dosage: 1200 MG
     Route: 042
     Dates: start: 20211103
  3. AMITRIPTYLINE [Concomitant]
     Active Substance: AMITRIPTYLINE
     Dosage: 25 MG EVERY 0.33 DAY
     Dates: start: 2018
  4. AMITRIPTYLINE [Concomitant]
     Active Substance: AMITRIPTYLINE
     Dosage: 25 MG EVERY 0.33 DAY
     Dates: start: 2018
  5. ATENOLOL [Concomitant]
     Active Substance: ATENOLOL
     Dosage: 50 MG, EVERY 1 DAY
     Dates: start: 2016
  6. ATENOLOL [Concomitant]
     Active Substance: ATENOLOL
     Dosage: 50 MG, EVERY 1 DAY
     Dates: start: 2016
  7. ATEZOLIZUMAB [Concomitant]
     Active Substance: ATEZOLIZUMAB
     Route: 065
  8. GABAPENTIN [Concomitant]
     Active Substance: GABAPENTIN
     Dosage: 100 MG EVERY 0.33 DAY
     Dates: start: 20210601
  9. LANSOPRAZOLE [Concomitant]
     Active Substance: LANSOPRAZOLE
     Indication: Prophylaxis
     Dosage: 10 MG, EVERY 1 DAY
     Dates: start: 20211025
  10. LANSOPRAZOLE [Concomitant]
     Active Substance: LANSOPRAZOLE
     Dosage: 30 MG, EVERY 1 DAY
     Dates: start: 20211025
  11. LERCANIDIPINE HYDROCHLORIDE [Concomitant]
     Active Substance: LERCANIDIPINE HYDROCHLORIDE
     Dosage: 10 MG, EVERY 1 DAY
     Dates: start: 2017
  12. LERCANIDIPINE HYDROCHLORIDE [Concomitant]
     Active Substance: LERCANIDIPINE HYDROCHLORIDE
     Dosage: 10 MG, EVERY 1 DAY
     Dates: start: 2017
  13. LIDOCAINE [Concomitant]
     Active Substance: LIDOCAINE
     Dosage: 10 MG, EVERY 1 DAY
     Route: 045
     Dates: start: 2020
  14. LIDOCAINE [Concomitant]
     Active Substance: LIDOCAINE
     Dosage: 10 MG, EVERY 1 DAY
     Route: 045
     Dates: start: 2020
  15. OXYCODONE [Concomitant]
     Active Substance: OXYCODONE
     Dosage: EVERY 0.5 DAY/ 5MG/ML;
     Dates: start: 20201101
  16. ACETAMINOPHEN [Concomitant]
     Active Substance: ACETAMINOPHEN
     Dosage: 500 MG
     Dates: start: 20210727
  17. RALTEGRAVIR [Concomitant]
     Active Substance: RALTEGRAVIR
     Dosage: 400 MG, BID
     Dates: start: 20170620
  18. TAMSULOSIN [Concomitant]
     Active Substance: TAMSULOSIN
     Dosage: 400 MICROGRAM EVERY 1 DAY
     Dates: start: 20211014
  19. TRUVADA [Concomitant]
     Active Substance: EMTRICITABINE\TENOFOVIR DISOPROXIL FUMARATE
     Dosage: EVERY 1 DAY/ 200MG/250MG;
     Dates: start: 20170620
  20. VANCOMYCIN [Concomitant]
     Active Substance: VANCOMYCIN
  21. DEXAMETHASONE [Concomitant]
     Active Substance: DEXAMETHASONE

REACTIONS (3)
  - Death [Fatal]
  - Fatigue [Not Recovered/Not Resolved]
  - Intentional product use issue [Unknown]

NARRATIVE: CASE EVENT DATE: 20211201
